FAERS Safety Report 16448992 (Version 1)
Quarter: 2019Q2

REPORT INFORMATION
  Report Type: Spontaneous
  Country: US (occurrence: US)
  Receive Date: 20190619
  Receipt Date: 20190619
  Transmission Date: 20190711
  Serious: No
  Sender: FDA-Public Use
  Company Number: US-AUROBINDO-AUR-APU-2018-027659

PATIENT
  Sex: Female

DRUGS (1)
  1. CLINDAMYCIN PALMITATE HYDROCHLORIDE FOR ORAL SOLUTION USP(PEDIATRIC) [Suspect]
     Active Substance: CLINDAMYCIN PALMITATE HYDROCHLORIDE
     Dosage: 1.49 MILLILITER EVERY 8 HOURS FOR 5 DAYS
     Route: 048
     Dates: start: 20180518, end: 20180519

REACTIONS (2)
  - No adverse event [Unknown]
  - Product storage error [Unknown]
